FAERS Safety Report 5061008-9 (Version None)
Quarter: 2006Q3

REPORT INFORMATION
  Report Type: 
  Country: None (occurrence: None)
  Receive Date: 20060719
  Receipt Date: 20060719
  Transmission Date: 20061208
  Serious: Yes (Hospitalization)
  Sender: FDA-Public Use
  Company Number: None

PATIENT
  Age: 57 Year
  Sex: Male
  Weight: 79.8331 kg

DRUGS (3)
  1. MOBIC [Suspect]
     Indication: BACK PAIN
     Dosage: 15 MG DAILY PO
     Route: 048
     Dates: start: 20060710, end: 20060711
  2. OMEPRAZOLE [Concomitant]
  3. SINGULAIR [Concomitant]

REACTIONS (8)
  - ANXIETY [None]
  - ASTHENIA [None]
  - BLOOD PRESSURE INCREASED [None]
  - DEPRESSED LEVEL OF CONSCIOUSNESS [None]
  - FEELING ABNORMAL [None]
  - PALLOR [None]
  - SYNCOPE [None]
  - TREMOR [None]
